FAERS Safety Report 22380731 (Version 2)
Quarter: 2024Q2

REPORT INFORMATION
  Report Type: Report from Study
  Country: CA (occurrence: CA)
  Receive Date: 20230529
  Receipt Date: 20240507
  Transmission Date: 20240716
  Serious: Yes (Other)
  Sender: FDA-Public Use
  Company Number: CA-ABBVIE-4320802

PATIENT
  Sex: Male

DRUGS (2)
  1. LUPRON DEPOT [Suspect]
     Active Substance: LEUPROLIDE ACETATE
     Indication: Salivary gland cancer
     Dosage: FORM STRENGTH: 3.75 MILLIGRAM
     Route: 030
  2. LUPRON DEPOT [Suspect]
     Active Substance: LEUPROLIDE ACETATE
     Dosage: FORM STRENGTH: 3.75 MILLIGRAM ?LAST ADMIN DATE: 2023
     Route: 030
     Dates: start: 20230221

REACTIONS (7)
  - Neoplasm progression [Unknown]
  - Off label use [Unknown]
  - Erectile dysfunction [Unknown]
  - General symptom [Recovered/Resolved]
  - Product prescribing issue [Unknown]
  - Fatigue [Unknown]
  - Impaired quality of life [Unknown]

NARRATIVE: CASE EVENT DATE: 20230101
